FAERS Safety Report 25490468 (Version 1)
Quarter: 2025Q2

REPORT INFORMATION
  Report Type: Spontaneous
  Country: US (occurrence: US)
  Receive Date: 20250627
  Receipt Date: 20250627
  Transmission Date: 20250717
  Serious: No
  Sender: SANOFI AVENTIS
  Company Number: US-SA-2025SA177921

PATIENT
  Sex: Female

DRUGS (3)
  1. DUPIXENT [Suspect]
     Active Substance: DUPILUMAB
     Indication: Dermatitis atopic
     Dosage: 300 MG, QOW
     Route: 058
     Dates: start: 202211
  2. OTEZLA [Concomitant]
     Active Substance: APREMILAST
  3. TREMFYA [Concomitant]
     Active Substance: GUSELKUMAB

REACTIONS (2)
  - Food allergy [Unknown]
  - Milk allergy [Unknown]
